FAERS Safety Report 24609395 (Version 1)
Quarter: 2024Q4

REPORT INFORMATION
  Report Type: Spontaneous
  Country: US (occurrence: None)
  Receive Date: 20241112
  Receipt Date: 20241112
  Transmission Date: 20250114
  Serious: No
  Sender: Public
  Company Number: None

PATIENT
  Age: 58 Year
  Sex: Male
  Weight: 78.75 kg

DRUGS (1)
  1. SUTAB [Suspect]
     Active Substance: MAGNESIUM SULFATE\POTASSIUM CHLORIDE\SODIUM SULFATE
     Indication: Bowel preparation
     Dosage: OTHER FREQUENCY : ONCE;?
     Route: 048
     Dates: start: 20241111, end: 20241112

REACTIONS (8)
  - Documented hypersensitivity to administered product [None]
  - Product label confusion [None]
  - Headache [None]
  - Nausea [None]
  - Vomiting [None]
  - Rash [None]
  - Product formulation issue [None]
  - Nasal congestion [None]

NARRATIVE: CASE EVENT DATE: 20241112
